FAERS Safety Report 7376168-4 (Version None)
Quarter: 2011Q1

REPORT INFORMATION
  Report Type: 
  Country: None (occurrence: None)
  Receive Date: 20110325
  Receipt Date: 20110316
  Transmission Date: 20110831
  Serious: Yes (Death, Life-Threatening)
  Sender: FDA-Public Use
  Company Number: DE-ROCHE-767365

PATIENT
  Sex: Female

DRUGS (2)
  1. AVASTIN [Suspect]
     Route: 042
  2. CHEMOTHERAPY [Concomitant]

REACTIONS (2)
  - ANASTOMOTIC HAEMORRHAGE [None]
  - DISEASE PROGRESSION [None]
